FAERS Safety Report 5067472-3 (Version None)
Quarter: 2006Q3

REPORT INFORMATION
  Report Type: 
  Country: None (occurrence: None)
  Receive Date: 20060731
  Receipt Date: 20060717
  Transmission Date: 20061208
  Serious: Yes (Life-Threatening, Other)
  Sender: FDA-Public Use
  Company Number: 0206025

PATIENT
  Sex: Female

DRUGS (1)
  1. DEPODUR (MT) (INJECTION) (MORPHINE SULFATE EXTENDED-RELEASE LIPOSOME I [Suspect]
     Indication: PROCEDURAL PAIN
     Dosage: 10 MG (ONCE)
     Dates: start: 20060710, end: 20060710

REACTIONS (9)
  - BRADYCARDIA [None]
  - ENCEPHALOPATHY [None]
  - HYPOTENSION [None]
  - HYPOTHERMIA [None]
  - MENTAL STATUS CHANGES [None]
  - MYOCARDIAL ISCHAEMIA [None]
  - RESPIRATORY DEPRESSION [None]
  - RESPIRATORY RATE DECREASED [None]
  - URINARY RETENTION [None]
